FAERS Safety Report 19319197 (Version 1)
Quarter: 2021Q2

REPORT INFORMATION
  Report Type: Spontaneous
  Country: US (occurrence: US)
  Receive Date: 20210528
  Receipt Date: 20210528
  Transmission Date: 20210717
  Serious: Yes (Other)
  Sender: FDA-Public Use
  Company Number: US-PURDUE-USA-2020-0223663

PATIENT

DRUGS (5)
  1. OXYCONTIN [Suspect]
     Active Substance: OXYCODONE HYDROCHLORIDE
     Indication: PRODUCT USED FOR UNKNOWN INDICATION
     Dosage: UNK
     Route: 048
     Dates: start: 200806
  2. HEROIN [Suspect]
     Active Substance: DIAMORPHINE
     Indication: PRODUCT USED FOR UNKNOWN INDICATION
     Dosage: UNK
     Route: 065
     Dates: start: 200806
  3. HYDROCODONE BITARTRATE (SIMILAR TO NDA 206627) [Suspect]
     Active Substance: HYDROCODONE BITARTRATE
     Indication: INJURY CORNEAL
     Dosage: UNK
     Route: 065
     Dates: start: 200806
  4. OXYCODONE HYDROCHLORIDE (SIMILAR TO NDA 22?272) [Suspect]
     Active Substance: OXYCODONE HYDROCHLORIDE
     Indication: INJURY CORNEAL
     Dosage: UNK (30 DAY SUPPLY)
     Route: 065
     Dates: start: 2007
  5. OXYCODONE HYDROCHLORIDE (SIMILAR TO NDA 22?272) [Suspect]
     Active Substance: OXYCODONE HYDROCHLORIDE
     Dosage: UNK
     Route: 065
     Dates: start: 200806

REACTIONS (2)
  - Drug dependence [Recovered/Resolved]
  - Drug abuse [Unknown]

NARRATIVE: CASE EVENT DATE: 20111202
